FAERS Safety Report 13948078 (Version 1)
Quarter: 2017Q3

REPORT INFORMATION
  Report Type: Spontaneous
  Country: FR (occurrence: FR)
  Receive Date: 20170908
  Receipt Date: 20170908
  Transmission Date: 20171128
  Serious: Yes (Other)
  Sender: FDA-Public Use
  Company Number: FR-ASTRAZENECA-2017SE86917

PATIENT
  Age: 32141 Day
  Sex: Female

DRUGS (11)
  1. MODOPAR [Concomitant]
     Active Substance: BENSERAZIDE HYDROCHLORIDE\LEVODOPA
     Dosage: MODOPAR SR 125 THREE TIMES DAILY
  2. RASAGILINE. [Concomitant]
     Active Substance: RASAGILINE
     Dosage: ONE IN THE MORNING
  3. TEMESTA [Concomitant]
     Active Substance: LORAZEPAM
     Dosage: ONE IN THE MORNING
  4. MODOPAR [Concomitant]
     Active Substance: BENSERAZIDE HYDROCHLORIDE\LEVODOPA
     Dosage: 125 ONE IN THE MORNING AND ONE AT MIDDAY
  5. ALPRAZOLAM. [Suspect]
     Active Substance: ALPRAZOLAM
     Route: 065
  6. RASAGILINE. [Concomitant]
     Active Substance: RASAGILINE
     Dosage: ONE IN THE MORNING
  7. GALANTAMINE HYDROBROMIDE. [Concomitant]
     Active Substance: GALANTAMINE HYDROBROMIDE
     Dosage: ONCE DAILY
  8. TEMESTA [Concomitant]
     Active Substance: LORAZEPAM
     Dosage: HALF-TABLET IN THE EVENING
  9. GUTRON [Concomitant]
     Active Substance: MIDODRINE
  10. XEROQUEL [Suspect]
     Active Substance: QUETIAPINE FUMARATE
     Dosage: 50.0MG UNKNOWN
     Route: 048
     Dates: start: 20170511, end: 20170511
  11. GUTRON [Concomitant]
     Active Substance: MIDODRINE
     Dosage: ONE IN THE MORNING

REACTIONS (2)
  - Drug dispensed to wrong patient [Recovered/Resolved]
  - Hypotension [Recovered/Resolved]

NARRATIVE: CASE EVENT DATE: 20170511
